FAERS Safety Report 10091955 (Version 2)
Quarter: 2014Q2

REPORT INFORMATION
  Report Type: Spontaneous
  Country: US (occurrence: US)
  Receive Date: 20140421
  Receipt Date: 20140421
  Transmission Date: 20141212
  Serious: No
  Sender: FDA-Public Use
  Company Number: US-GILEAD-2013-0070141

PATIENT
  Age: 63 Year
  Sex: Female

DRUGS (2)
  1. LETAIRIS [Suspect]
     Indication: PULMONARY HYPERTENSION
     Dosage: 5 MG, UNK
     Dates: start: 20121204
  2. LETAIRIS [Suspect]
     Indication: PULMONARY ARTERIAL PRESSURE INCREASED

REACTIONS (3)
  - Ventilation perfusion mismatch [Unknown]
  - Dyspnoea [Unknown]
  - Swelling [Unknown]
